FAERS Safety Report 7644867-2 (Version None)
Quarter: 2011Q3

REPORT INFORMATION
  Report Type: 
  Country: None (occurrence: None)
  Receive Date: 20110729
  Receipt Date: 20110725
  Transmission Date: 20111222
  Serious: Yes (Hospitalization)
  Sender: FDA-Public Use
  Company Number: US-ABBOTT-11P-163-0841595-00

PATIENT
  Weight: 45.4 kg

DRUGS (10)
  1. CALCIUM MAGNESIUM [Concomitant]
     Indication: MINERAL SUPPLEMENTATION
  2. HUMIRA [Suspect]
     Indication: RHEUMATOID ARTHRITIS
     Dates: start: 20100212
  3. HUMIRA [Suspect]
     Dates: start: 20110701
  4. PLAQUENIL [Concomitant]
     Indication: RHEUMATOID ARTHRITIS
  5. BENICAR [Concomitant]
     Indication: HYPERTENSION
  6. CYMBALTA [Suspect]
     Indication: PANIC ATTACK
     Dates: start: 20100101, end: 20100401
  7. VITAMIN D [Concomitant]
     Indication: VITAMIN SUPPLEMENTATION
  8. KEPPRA [Concomitant]
     Indication: CONVULSION PROPHYLAXIS
     Dosage: BID
  9. FOLIC ACID [Concomitant]
     Indication: VITAMIN SUPPLEMENTATION
  10. PREDNISONE [Concomitant]
     Indication: RHEUMATOID ARTHRITIS

REACTIONS (4)
  - WEIGHT DECREASED [None]
  - UNEVALUABLE EVENT [None]
  - ARTHRITIS [None]
  - GRAND MAL CONVULSION [None]
